FAERS Safety Report 10486499 (Version 3)
Quarter: 2014Q4

REPORT INFORMATION
  Report Type: Spontaneous
  Country: US (occurrence: None)
  Receive Date: 20140926
  Receipt Date: 20141024
  Transmission Date: 20150528
  Serious: Yes (Life-Threatening)
  Sender: FDA-Public Use
  Company Number: 1713747-2014-99986

PATIENT
  Age: 63 Year
  Sex: Male
  Weight: 85 kg

DRUGS (16)
  1. DELFLEX [Suspect]
     Active Substance: CALCIUM CHLORIDE\DEXTROSE MONOHYDRATE\MAGNESIUM CHLORIDE\SODIUM CHLORIDE\SODIUM LACTATE
     Indication: CHRONIC KIDNEY DISEASE
     Dosage: PERITONEAL DIALYSIS
     Dates: start: 20110929
  2. CELEXA [Concomitant]
     Active Substance: CITALOPRAM HYDROBROMIDE
  3. LEVEMIR [Concomitant]
     Active Substance: INSULIN DETEMIR
  4. ZEMPLAR [Concomitant]
     Active Substance: PARICALCITOL
  5. RESTORIL [Concomitant]
     Active Substance: TEMAZEPAM
  6. TESSALON [Concomitant]
     Active Substance: BENZONATATE
  7. EPOGEN [Concomitant]
     Active Substance: ERYTHROPOIETIN
  8. CEFTIN [Concomitant]
     Active Substance: CEFUROXIME AXETIL
  9. CEFTIN/VANCOMYCIN [Concomitant]
  10. RENVELA [Concomitant]
     Active Substance: SEVELAMER CARBONATE
  11. PRILOSEC [Concomitant]
     Active Substance: OMEPRAZOLE MAGNESIUM
  12. RENAL SOFTGEL [Concomitant]
  13. ASPIRIN. [Concomitant]
     Active Substance: ASPIRIN
  14. CLONIDINE. [Concomitant]
     Active Substance: CLONIDINE
  15. SIMVASTATIN. [Concomitant]
     Active Substance: SIMVASTATIN
  16. DIOVAN [Concomitant]
     Active Substance: VALSARTAN

REACTIONS (1)
  - Peritonitis [None]

NARRATIVE: CASE EVENT DATE: 20110929
